FAERS Safety Report 9269424 (Version 1)
Quarter: 2013Q2

REPORT INFORMATION
  Report Type: Spontaneous
  Country: US (occurrence: US)
  Receive Date: 20130503
  Receipt Date: 20130503
  Transmission Date: 20140414
  Serious: Yes (Hospitalization)
  Sender: FDA-Public Use
  Company Number: US-BAYER-2013-051412

PATIENT
  Age: 22 Year
  Sex: Female

DRUGS (15)
  1. YASMIN [Suspect]
  2. TOPAMAX [Concomitant]
     Dosage: UNK
     Dates: start: 20031007
  3. PROZAC [Concomitant]
     Dosage: UNK
     Dates: start: 20031007
  4. ALBUTEROL [Concomitant]
     Dosage: UNK
     Dates: start: 20031007
  5. VIOXX [Concomitant]
     Dosage: UNK
     Dates: start: 20031204
  6. METRONIDAZOLE [Concomitant]
  7. FLUOXETINE [Concomitant]
  8. METROGEL [Concomitant]
     Route: 067
  9. BEXTRA [Concomitant]
  10. TUSSAFED-LA [Concomitant]
  11. LIDOCAINE [Concomitant]
     Dosage: 2 %, UNK
  12. NITROFURANTOIN [Concomitant]
  13. HYDROCODONE W/ACETAMINOPHEN [Concomitant]
  14. IBUPROFEN [Concomitant]
  15. DILAUDID [Concomitant]

REACTIONS (1)
  - Deep vein thrombosis [None]
